FAERS Safety Report 9506365 (Version 1)
Quarter: 2013Q1

REPORT INFORMATION
  Report Type: Spontaneous
  Country: US (occurrence: None)
  Receive Date: 20130301
  Receipt Date: 20130301
  Transmission Date: 20140127
  Serious: Yes (Hospitalization)
  Sender: FDA-Public Use
  Company Number: RB-47918-2012

PATIENT
  Sex: 0

DRUGS (1)
  1. BUPRENORPHINE [Suspect]
     Indication: PRODUCT USED FOR UNKNOWN INDICATION
     Route: 064
     Dates: start: 2008, end: 20090216

REACTIONS (2)
  - Drug withdrawal syndrome neonatal [None]
  - Foetal exposure during pregnancy [None]
